FAERS Safety Report 11133474 (Version 2)
Quarter: 2015Q2

REPORT INFORMATION
  Report Type: Spontaneous
  Country: IT (occurrence: IT)
  Receive Date: 20150522
  Receipt Date: 20150527
  Transmission Date: 20150821
  Serious: Yes (Other)
  Sender: FDA-Public Use
  Company Number: IT-ASTRAZENECA-2015SE45597

PATIENT
  Age: 50 Year
  Sex: Male

DRUGS (2)
  1. LUCEN [Suspect]
     Active Substance: ESOMEPRAZOLE
     Indication: ABDOMINAL PAIN UPPER
     Route: 048
     Dates: start: 20150513, end: 20150513
  2. LUCEN [Suspect]
     Active Substance: ESOMEPRAZOLE
     Indication: ABDOMINAL PAIN UPPER
     Route: 048
     Dates: start: 201504

REACTIONS (4)
  - Dysgeusia [Recovered/Resolved]
  - Erythema [Recovered/Resolved]
  - Hypothermia [Recovered/Resolved]
  - Hyposmia [Recovered/Resolved]

NARRATIVE: CASE EVENT DATE: 201504
